FAERS Safety Report 13088427 (Version 1)
Quarter: 2017Q1

REPORT INFORMATION
  Report Type: Spontaneous
  Country: GB (occurrence: GB)
  Receive Date: 20170105
  Receipt Date: 20170105
  Transmission Date: 20170428
  Serious: Yes (Other)
  Sender: FDA-Public Use
  Company Number: GB-PFIZER INC-2016605734

PATIENT
  Age: 36 Year

DRUGS (4)
  1. PACLITAXEL. [Suspect]
     Active Substance: PACLITAXEL
     Indication: CHEMOTHERAPY
     Dosage: UNK
     Dates: start: 20160927
  2. RANITIDINE. [Concomitant]
     Active Substance: RANITIDINE
     Indication: PREMEDICATION
     Dosage: 50 MG, UNK
     Dates: start: 20160927
  3. DEXAMETHASONE. [Concomitant]
     Active Substance: DEXAMETHASONE
     Indication: PREMEDICATION
     Dosage: 16 MG, UNK
     Dates: start: 20160927
  4. CHLORPHENIRAMINE. [Concomitant]
     Active Substance: CHLORPHENIRAMINE
     Indication: PREMEDICATION
     Dosage: 10 MG, UNK
     Dates: start: 20160927

REACTIONS (5)
  - Hyperhidrosis [Unknown]
  - Loss of consciousness [Unknown]
  - Pallor [Unknown]
  - Urinary incontinence [Unknown]
  - Vomiting [Unknown]

NARRATIVE: CASE EVENT DATE: 20160927
